FAERS Safety Report 6410947-2 (Version None)
Quarter: 2009Q4

REPORT INFORMATION
  Report Type: 
  Country: None (occurrence: None)
  Receive Date: 20091022
  Receipt Date: 20091014
  Transmission Date: 20100525
  Serious: Yes (Hospitalization)
  Sender: FDA-Public Use
  Company Number: PHHO2009BR12662

PATIENT
  Sex: Male

DRUGS (1)
  1. RAD 666 RAD+TAB [Suspect]
     Indication: LIVER TRANSPLANT
     Dosage: UNK
     Route: 048

REACTIONS (3)
  - ARTERIAL REPAIR [None]
  - HEPATIC ARTERY THROMBOSIS [None]
  - THROMBECTOMY [None]
